FAERS Safety Report 6347042-7 (Version None)
Quarter: 2009Q3

REPORT INFORMATION
  Report Type: 
  Country: None (occurrence: None)
  Receive Date: 20090909
  Receipt Date: 20090909
  Transmission Date: 20100115
  Serious: Yes (Hospitalization)
  Sender: FDA-Public Use
  Company Number: None

PATIENT
  Sex: Female
  Weight: 77.1115 kg

DRUGS (4)
  1. CHANTIX [Suspect]
     Indication: SMOKING CESSATION THERAPY
     Dosage: ONE TABLET BID PO
     Route: 048
     Dates: start: 20090501, end: 20090801
  2. CELEXA [Concomitant]
  3. OXYCODONE [Concomitant]
  4. GABAPENTIN [Concomitant]

REACTIONS (1)
  - CONVULSION [None]
